FAERS Safety Report 17113084 (Version 1)
Quarter: 2019Q4

REPORT INFORMATION
  Report Type: Spontaneous
  Country: DE (occurrence: DE)
  Receive Date: 20191204
  Receipt Date: 20191204
  Transmission Date: 20200122
  Serious: Yes (Other)
  Sender: FDA-Public Use
  Company Number: DE-GILEAD-2019-0424919

PATIENT
  Age: 80 Year
  Sex: Male

DRUGS (15)
  1. NEBIVOLOL HYDROCHLORIDE [Suspect]
     Active Substance: NEBIVOLOL HYDROCHLORIDE
     Indication: CORONARY ARTERY DISEASE
     Dosage: 2.5 MG, QD
     Route: 048
  2. ACETYLSALICYLIC ACID [Suspect]
     Active Substance: ASPIRIN
     Indication: CORONARY ARTERY DISEASE
     Dosage: 100 MG, QD
     Route: 048
  3. RANEXA [Suspect]
     Active Substance: RANOLAZINE
     Indication: ANGINA PECTORIS
     Dosage: 375 MG, BID
     Route: 048
     Dates: start: 20190812
  4. SARILUMAB [Suspect]
     Active Substance: SARILUMAB
     Indication: RHEUMATOID ARTHRITIS
     Dosage: 150 MG
     Route: 058
     Dates: start: 20190115
  5. RANEXA [Suspect]
     Active Substance: RANOLAZINE
     Indication: CORONARY ARTERY DISEASE
  6. PREDNISONE. [Suspect]
     Active Substance: PREDNISONE
     Indication: RHEUMATOID ARTHRITIS
     Route: 048
  7. PRAVASTATIN. [Concomitant]
     Active Substance: PRAVASTATIN
     Indication: LIPID METABOLISM DISORDER
     Dosage: 20 MG, QD, IN THE EVENING
     Route: 048
  8. COLECALCIFEROL [Suspect]
     Active Substance: CHOLECALCIFEROL
     Indication: OSTEOPOROSIS PROPHYLAXIS
     Dosage: 1 IU, Q1WK
     Route: 048
  9. XELEVIA [Concomitant]
     Active Substance: SITAGLIPTIN PHOSPHATE
     Indication: DIABETES MELLITUS
     Dosage: 50 MG, BID, IN THE MORNING
     Route: 048
  10. BISOPROLOL [Concomitant]
     Active Substance: BISOPROLOL
     Dosage: 5 MG, QD, IN THE MORNING
     Route: 048
  11. PRAVASTATIN SODIUM. [Suspect]
     Active Substance: PRAVASTATIN SODIUM
     Indication: CORONARY ARTERY DISEASE
     Dosage: 40 MG, QD
     Route: 048
  12. CANDESARTAN. [Suspect]
     Active Substance: CANDESARTAN
     Indication: BLOOD PRESSURE ABNORMAL
     Dosage: 4 MG, QD
     Route: 048
  13. CANDESARTAN. [Suspect]
     Active Substance: CANDESARTAN
     Indication: CORONARY ARTERY DISEASE
  14. AMLODIPINE [Concomitant]
     Active Substance: AMLODIPINE BESYLATE
     Dosage: 5 MG, QD, IN THE MORNING
     Route: 048
     Dates: start: 20190812
  15. METHOTREXATE. [Concomitant]
     Active Substance: METHOTREXATE
     Indication: RHEUMATOID ARTHRITIS
     Route: 048
     Dates: start: 20190119

REACTIONS (5)
  - Myocardial infarction [Recovering/Resolving]
  - Nausea [Unknown]
  - Headache [Unknown]
  - Constipation [Unknown]
  - Dizziness [Unknown]

NARRATIVE: CASE EVENT DATE: 20190813
